FAERS Safety Report 24263735 (Version 2)
Quarter: 2024Q4

REPORT INFORMATION
  Report Type: Spontaneous
  Country: US (occurrence: US)
  Receive Date: 20240829
  Receipt Date: 20241008
  Transmission Date: 20250115
  Serious: No
  Sender: BIOVITRUM
  Company Number: US-BIOVITRUM-2024-US-010513

PATIENT
  Age: 68 Year
  Sex: Male

DRUGS (3)
  1. VONJO [Suspect]
     Active Substance: PACRITINIB
     Indication: Myelofibrosis
     Dosage: TWICE DAILY
     Route: 048
  2. VONJO [Suspect]
     Active Substance: PACRITINIB
     Dosage: 200MG TWICE DAILY
     Route: 048
     Dates: start: 20240803
  3. VONJO [Suspect]
     Active Substance: PACRITINIB
     Dosage: UNKNOWN
     Route: 048
     Dates: start: 20240803

REACTIONS (7)
  - Off label use [Recovered/Resolved]
  - Splenomegaly [Unknown]
  - Dyspnoea [Unknown]
  - Headache [Unknown]
  - Myalgia [Unknown]
  - Insomnia [Unknown]
  - Drug ineffective [Unknown]
